FAERS Safety Report 17376661 (Version 1)
Quarter: 2020Q1

REPORT INFORMATION
  Report Type: Spontaneous
  Country: US (occurrence: US)
  Receive Date: 20200122
  Receipt Date: 20200122
  Transmission Date: 20200409
  Serious: No
  Sender: FDA-Public Use
  Company Number: None

PATIENT
  Age: 40 Year
  Sex: Female

DRUGS (1)
  1. COPAXONE [Suspect]
     Active Substance: GLATIRAMER ACETATE
     Dosage: ?          OTHER FREQUENCY:OTHER;?
     Route: 058
     Dates: start: 2012

REACTIONS (3)
  - Chest discomfort [None]
  - Palpitations [None]
  - Rash [None]

NARRATIVE: CASE EVENT DATE: 20200122
